FAERS Safety Report 10063014 (Version 1)
Quarter: 2014Q2

REPORT INFORMATION
  Report Type: Spontaneous
  Country: FR (occurrence: FR)
  Receive Date: 20140407
  Receipt Date: 20140407
  Transmission Date: 20141212
  Serious: Yes (Life-Threatening, Hospitalization, Disabling)
  Sender: FDA-Public Use
  Company Number: FR-BRISTOL-MYERS SQUIBB COMPANY-20578837

PATIENT
  Age: 68 Year
  Sex: Male

DRUGS (6)
  1. ABILIFY [Suspect]
     Route: 048
     Dates: start: 201306, end: 20130621
  2. BISOPROLOL [Concomitant]
  3. PLAVIX [Concomitant]
  4. LERCAN [Concomitant]
  5. ATORVASTATIN [Concomitant]
  6. MOPRAL [Concomitant]

REACTIONS (2)
  - Ventricular fibrillation [Recovered/Resolved]
  - Cardio-respiratory arrest [Recovered/Resolved with Sequelae]
